FAERS Safety Report 9522389 (Version 1)
Quarter: 2013Q1

REPORT INFORMATION
  Report Type: Spontaneous
  Country: US (occurrence: None)
  Receive Date: 20130305
  Receipt Date: 20130305
  Transmission Date: 20140127
  Serious: Yes (Hospitalization)
  Sender: FDA-Public Use
  Company Number: 163-21880-12032119

PATIENT
  Age: 80 Year
  Sex: Female

DRUGS (18)
  1. REVLIMID (LENALIDOMIDE) (CAPSULES) [Suspect]
     Indication: PLASMA CELL MYELOMA
     Dosage: 10 MG, 21 IN 21 D, PO
     Route: 048
     Dates: start: 20111220
  2. ATENOLOL (ATENOLOL) [Concomitant]
  3. CALCIUM (CALCIUM) [Concomitant]
  4. DETROL (TOLTERODINE L-TARTRATE) [Concomitant]
  5. LEVOTHYROXINE (LEVOTHYROXINE) [Concomitant]
  6. LIPITOR (ATORVASTATIN) [Concomitant]
  7. MULTI VITAMIN (MULTIVITAMINS) [Concomitant]
  8. POTASSIUM (POTASSIUM) [Concomitant]
  9. PREVACID (LANSOPRAZOLE) [Concomitant]
  10. PRILOSEC [Concomitant]
  11. TYLENOL (PARACETAMOL) [Concomitant]
  12. B12 (CYANOCOBALAMIN) [Concomitant]
  13. VITAMIN D (ERGOCALCIFEROL) [Concomitant]
  14. VITAMIN E (TOCOPHEROL) [Concomitant]
  15. ZOLOFT (SERTRALINE HYDROCHLORIDE) [Concomitant]
  16. LASIX (FUROSEMIDE) [Concomitant]
  17. KLOR-CON (POTASSIUM CHLORIDE) [Concomitant]
  18. HYDROCODONE (HYDROCODONE) [Concomitant]

REACTIONS (7)
  - Dehydration [None]
  - Diarrhoea [None]
  - White blood cell count decreased [None]
  - Pyrexia [None]
  - Infection [None]
  - Night sweats [None]
  - Back pain [None]
